FAERS Safety Report 4778004-9 (Version None)
Quarter: 2005Q3

REPORT INFORMATION
  Report Type: 
  Country: None (occurrence: None)
  Receive Date: 20050921
  Receipt Date: 20050901
  Transmission Date: 20060218
  Serious: No
  Sender: FDA-Public Use
  Company Number: EWC050945680

PATIENT
  Age: 62 Year
  Sex: Male
  Weight: 104 kg

DRUGS (1)
  1. CIALIS [Suspect]
     Indication: ERECTILE DYSFUNCTION
     Dosage: 10 MG AS NEEDED
     Dates: start: 20030101

REACTIONS (2)
  - CONJUNCTIVAL HAEMORRHAGE [None]
  - INTRAOCULAR PRESSURE INCREASED [None]
